FAERS Safety Report 23954108 (Version 1)
Quarter: 2024Q2

REPORT INFORMATION
  Report Type: Spontaneous
  Country: US (occurrence: None)
  Receive Date: 20240609
  Receipt Date: 20240609
  Transmission Date: 20240716
  Serious: No
  Sender: FDA-Public Use
  Company Number: US-ROCHE-3523308

PATIENT
  Age: 71 Year
  Sex: Male
  Weight: 84.444 kg

DRUGS (13)
  1. TNKASE [Suspect]
     Active Substance: TENECTEPLASE
     Indication: Acute myocardial infarction
     Dosage: DOSAGE: 9ML (45MG) BASED ON WEIGHT
     Route: 042
     Dates: start: 20240210, end: 20240210
  2. TNKASE [Suspect]
     Active Substance: TENECTEPLASE
     Indication: Vascular access site extravasation
  3. TNKASE [Suspect]
     Active Substance: TENECTEPLASE
     Indication: Transient ischaemic attack
  4. TNKASE [Suspect]
     Active Substance: TENECTEPLASE
     Indication: Thrombosis
  5. HYDROCHLOROTHIAZIDE [Concomitant]
     Active Substance: HYDROCHLOROTHIAZIDE
     Route: 048
  6. CLOPIDOGREL [Concomitant]
     Active Substance: CLOPIDOGREL BISULFATE
     Route: 048
  7. SIMVASTATIN [Concomitant]
     Active Substance: SIMVASTATIN
     Route: 048
  8. PANTOPRAZOLE SODIUM [Concomitant]
     Active Substance: PANTOPRAZOLE SODIUM
     Route: 048
  9. METOPROLOL [Concomitant]
     Active Substance: METOPROLOL
     Route: 048
  10. VALSARTAN [Concomitant]
     Active Substance: VALSARTAN
  11. GLIPIZIDE [Concomitant]
     Active Substance: GLIPIZIDE
     Route: 048
  12. METFORMIN [Concomitant]
     Active Substance: METFORMIN HYDROCHLORIDE
     Route: 048
  13. ASPIRIN [Concomitant]
     Active Substance: ASPIRIN
     Route: 048

REACTIONS (9)
  - Necrosis [Not Recovered/Not Resolved]
  - Incorrect dose administered [Unknown]
  - Off label use [Unknown]
  - Injection site extravasation [Recovered/Resolved]
  - Compartment syndrome [Unknown]
  - Pain in extremity [Recovered/Resolved]
  - Movement disorder [Recovered/Resolved]
  - Hypokinesia [Recovered/Resolved]
  - Hypoaesthesia [Recovered/Resolved]

NARRATIVE: CASE EVENT DATE: 20240210
